FAERS Safety Report 14561238 (Version 1)
Quarter: 2018Q1

REPORT INFORMATION
  Report Type: Spontaneous
  Country: US (occurrence: US)
  Receive Date: 20180222
  Receipt Date: 20180222
  Transmission Date: 20180509
  Serious: No
  Sender: FDA-Public Use
  Company Number: US-PFIZER INC-2018068930

PATIENT
  Sex: Female

DRUGS (1)
  1. ADVIL LIQUI-GELS [Suspect]
     Active Substance: IBUPROFEN
     Indication: RIB FRACTURE
     Dosage: UNK UNK, DAILY  (2 OR 3 DAILY FOR 5 OR 6 DAYS)

REACTIONS (3)
  - Chest discomfort [Unknown]
  - Intentional product misuse [Unknown]
  - Oedema mouth [Unknown]
